FAERS Safety Report 10839203 (Version 1)
Quarter: 2015Q1

REPORT INFORMATION
  Report Type: Spontaneous
  Country: US (occurrence: US)
  Receive Date: 20150220
  Receipt Date: 20150220
  Transmission Date: 20150721
  Serious: Yes (Other)
  Sender: FDA-Public Use
  Company Number: US-ABBVIE-14P-163-1253062-00

PATIENT

DRUGS (1)
  1. HUMIRA [Suspect]
     Active Substance: ADALIMUMAB
     Indication: RHEUMATOID ARTHRITIS

REACTIONS (4)
  - Peritoneal dialysis [Not Recovered/Not Resolved]
  - Drug effect incomplete [Unknown]
  - Joint dislocation [Not Recovered/Not Resolved]
  - Synovitis [Not Recovered/Not Resolved]
